FAERS Safety Report 8727433 (Version 2)
Quarter: 2012Q4

REPORT INFORMATION
  Report Type: 
  Country: US (occurrence: US)
  Receive Date: 20120816
  Receipt Date: 20120829
  Transmission Date: 20130627
  Serious: Yes (Other)
  Sender: FDA-Public Use
  Company Number: PHEH2012US015968

PATIENT
  Sex: Female

DRUGS (6)
  1. GILENYA [Suspect]
     Indication: MULTIPLE SCLEROSIS
     Dosage: 0.5 mg, QD
     Route: 048
     Dates: start: 201102
  2. FAMPRIDINE [Concomitant]
     Dosage: 10 mg, BID
  3. AMBIEN [Concomitant]
     Dosage: 5 mg, UNK
  4. WELLBUTRIN XL [Concomitant]
     Dosage: 300 mg, UNK
  5. ATIVAN [Concomitant]
     Dosage: 1 mg, UNK
  6. ABILIFY [Concomitant]
     Dosage: 10 mg, UNK

REACTIONS (2)
  - Central nervous system lesion [Not Recovered/Not Resolved]
  - Multiple sclerosis [None]
